FAERS Safety Report 23703302 (Version 3)
Quarter: 2024Q2

REPORT INFORMATION
  Report Type: Spontaneous
  Country: JP (occurrence: None)
  Receive Date: 20240403
  Receipt Date: 20240418
  Transmission Date: 20240715
  Serious: Yes (Disabling)
  Sender: FDA-Public Use
  Company Number: 2024A078616

PATIENT
  Age: 61 Year
  Sex: Female
  Weight: 49 kg

DRUGS (11)
  1. FASENRA [Suspect]
     Active Substance: BENRALIZUMAB
     Indication: Asthma
     Route: 058
     Dates: start: 20191212
  2. FASENRA [Suspect]
     Active Substance: BENRALIZUMAB
     Indication: Asthma
     Route: 058
     Dates: start: 20200226
  3. FLUTICASONE PROPIONATE\FORMOTEROL FUMARATE [Concomitant]
     Active Substance: FLUTICASONE PROPIONATE\FORMOTEROL FUMARATE
     Indication: Asthma
     Dosage: NUMBER OF SEPARATE DOSAGES UNKNOWN8.0DF UNKNOWN
     Route: 055
     Dates: start: 20190313
  4. MONTELUKAST [Concomitant]
     Active Substance: MONTELUKAST SODIUM
     Indication: Asthma
     Route: 048
     Dates: start: 20181227
  5. THEOPHYLLINE [Concomitant]
     Active Substance: THEOPHYLLINE
     Indication: Asthma
     Route: 048
     Dates: start: 20190131
  6. ERYTHROCIN [Concomitant]
     Active Substance: ERYTHROMYCIN LACTOBIONATE
     Indication: Asthma
     Route: 048
     Dates: start: 20181227
  7. SPIRIVA [Concomitant]
     Active Substance: TIOTROPIUM BROMIDE MONOHYDRATE
     Indication: Asthma
     Route: 055
     Dates: start: 20190227
  8. ALVESCO [Concomitant]
     Active Substance: CICLESONIDE
     Indication: Asthma
     Route: 055
     Dates: start: 20191010
  9. TEPRENONE [Concomitant]
     Active Substance: TEPRENONE
     Indication: Asthma
     Dosage: FINE GRAIN
     Route: 048
     Dates: start: 20181227
  10. DIETARY SUPPLEMENT\PROBIOTICS [Concomitant]
     Active Substance: DIETARY SUPPLEMENT\PROBIOTICS NOS
     Indication: Constipation
     Route: 048
     Dates: start: 20181227
  11. CORTRIL [Concomitant]
     Active Substance: HYDROCORTISONE
     Indication: Adrenocorticotropic hormone deficiency
     Route: 048
     Dates: start: 20190127

REACTIONS (2)
  - Pyelonephritis [Unknown]
  - Hydronephrosis [Unknown]

NARRATIVE: CASE EVENT DATE: 20210108
